FAERS Safety Report 21621148 (Version 2)
Quarter: 2024Q1

REPORT INFORMATION
  Report Type: Report from Study
  Country: US (occurrence: US)
  Receive Date: 20221121
  Receipt Date: 20240311
  Transmission Date: 20240409
  Serious: No
  Sender: FDA-Public Use
  Company Number: US-ABBVIE-4205845

PATIENT
  Sex: Male

DRUGS (2)
  1. VENCLEXTA [Suspect]
     Active Substance: VENETOCLAX
     Indication: Myelodysplastic syndrome
     Dosage: FORM STRENGTH: 100MG
     Route: 048
  2. DECITABINE [Concomitant]
     Active Substance: DECITABINE
     Indication: Product used for unknown indication

REACTIONS (1)
  - Off label use [Unknown]
